FAERS Safety Report 13709107 (Version 3)
Quarter: 2017Q3

REPORT INFORMATION
  Report Type: Spontaneous
  Country: None (occurrence: DE)
  Receive Date: 20170702
  Receipt Date: 20170901
  Transmission Date: 20171127
  Serious: Yes (Hospitalization, Other)
  Sender: FDA-Public Use
  Company Number: PHHY2017DE080619

PATIENT
  Sex: Male
  Weight: 77 kg

DRUGS (1)
  1. VOTRIENT [Suspect]
     Active Substance: PAZOPANIB HYDROCHLORIDE
     Indication: RENAL CELL CARCINOMA
     Dosage: 800 MG, QD
     Route: 048
     Dates: start: 201605

REACTIONS (9)
  - Diabetes mellitus [Not Recovered/Not Resolved]
  - Loss of consciousness [Unknown]
  - Hypoglycaemic encephalopathy [Recovering/Resolving]
  - Motor dysfunction [Unknown]
  - Coma [Unknown]
  - Insomnia [Unknown]
  - Status epilepticus [Recovering/Resolving]
  - Confusional state [Unknown]
  - Mental impairment [Unknown]

NARRATIVE: CASE EVENT DATE: 20160512
